FAERS Safety Report 9075718 (Version 1)
Quarter: 2013Q1

REPORT INFORMATION
  Report Type: Report from Study
  Country: US (occurrence: US)
  Receive Date: 20130129
  Receipt Date: 20130129
  Transmission Date: 20140127
  Serious: No
  Sender: FDA-Public Use
  Company Number: US-ABBOTT-12P-163-0940400-00

PATIENT
  Age: 29 Year
  Sex: Male

DRUGS (3)
  1. HUMIRA 40 MG/0.8 ML PEN [Suspect]
     Indication: CROHN^S DISEASE
     Dosage: 160 MG GIVEN 21 MAY 2012
     Dates: start: 20120521
  2. 6-MP [Concomitant]
     Indication: CROHN^S DISEASE
  3. PROTONIX [Concomitant]
     Indication: CROHN^S DISEASE

REACTIONS (6)
  - Device malfunction [Unknown]
  - Productive cough [Unknown]
  - Throat irritation [Unknown]
  - Dysphonia [Unknown]
  - Sputum discoloured [Unknown]
  - Nasopharyngitis [Not Recovered/Not Resolved]
